FAERS Safety Report 10233086 (Version 1)
Quarter: 2014Q2

REPORT INFORMATION
  Report Type: Spontaneous
  Country: US (occurrence: None)
  Receive Date: 20140610
  Receipt Date: 20140610
  Transmission Date: 20141212
  Serious: Yes (Life-Threatening, Other)
  Sender: FDA-Public Use
  Company Number: DAV-AE-MTX-14-17

PATIENT
  Age: 20 Year
  Sex: Male

DRUGS (8)
  1. METHOTREXATE [Suspect]
     Indication: ACUTE LYMPHOCYTIC LEUKAEMIA
     Dosage: UNKNOWN, IV + INTRATHECAL
     Route: 037
  2. VINCRISTINE [Concomitant]
  3. DOXORUBICIN [Concomitant]
  4. PREDNISONE [Concomitant]
  5. ASPARGINASE [Concomitant]
  6. MERCAPTOPURINE [Concomitant]
  7. CYTARABINE [Concomitant]
  8. IRRADITION [Concomitant]

REACTIONS (2)
  - Cerebral haemangioma [None]
  - Cerebral haemorrhage [None]
